FAERS Safety Report 8591838-8 (Version None)
Quarter: 2012Q3

REPORT INFORMATION
  Report Type: 
  Country: None (occurrence: None)
  Receive Date: 20120814
  Receipt Date: 20120810
  Transmission Date: 20120928
  Serious: Yes (Other)
  Sender: FDA-Public Use
  Company Number: PHHY2012MY025120

PATIENT
  Sex: Female

DRUGS (19)
  1. LEUCOVORIN CALCIUM [Concomitant]
     Dosage: 50 MG, UNK
     Route: 042
     Dates: start: 20120320
  2. CHLORPHENIRAMINE MALEATE [Concomitant]
     Dosage: 8 MG, DAILY
     Route: 048
     Dates: start: 20120229, end: 20120316
  3. SULPERAZONE [Concomitant]
     Dosage: 1 G, TID
     Route: 042
     Dates: start: 20120301, end: 20120308
  4. FYBOGEL [Concomitant]
     Dosage: 1 DF, DAILY
     Route: 048
     Dates: start: 20120228, end: 20120313
  5. PANTOPRAZOLE [Concomitant]
     Dosage: 40 MG, TID
     Route: 042
     Dates: start: 20120313, end: 20120314
  6. TRAMADOL HYDROCHLORIDE [Concomitant]
     Dosage: 50 MG, BID
     Route: 048
     Dates: start: 20120228, end: 20120313
  7. DEXAMETHASONE [Concomitant]
     Dosage: 1.5 MG, BID
     Route: 048
     Dates: start: 20120308, end: 20120312
  8. PANTOPRAZOLE [Concomitant]
     Dosage: 40 MG, BID
     Dates: start: 20120315, end: 20120322
  9. IMATINIB MESYLATE [Suspect]
     Indication: GASTROINTESTINAL STROMAL TUMOUR
     Dosage: 400 MG, DAILY
     Dates: start: 20070725
  10. FOLIC ACID [Concomitant]
     Dosage: 5 MG, DAILY
     Route: 048
     Dates: start: 20120228, end: 20120317
  11. TRANSAMINE CAP [Concomitant]
     Dosage: 500 MG, BID
     Route: 042
     Dates: start: 20120319
  12. VITAMIN K TAB [Concomitant]
     Dosage: 10 MG, UNK
     Route: 042
     Dates: start: 20120229
  13. PARACETAMOL SYRUP [Concomitant]
     Dosage: 500 MG, AFTER EACH 6 HOURS
     Dates: start: 20120322
  14. VITAMIN K TAB [Concomitant]
     Dosage: 10 MG, UNK
     Route: 042
     Dates: start: 20120320
  15. METHYLCOBALAMIN [Concomitant]
     Dosage: 1 MG, UNK
     Route: 042
     Dates: start: 20120320
  16. POTASSIUM SUPPLEMENTS [Concomitant]
     Dosage: 2 DF, DAILY
     Route: 048
     Dates: start: 20120228, end: 20120307
  17. OMEPRAZOLE [Concomitant]
     Dosage: 20 MG, BID
     Route: 048
     Dates: start: 20120307, end: 20120313
  18. DIGOXIN [Concomitant]
     Dosage: 0.062 MG, DAILY
     Route: 048
     Dates: start: 20120308, end: 20120318
  19. MAGNESIUM HYDROXIDE TAB [Concomitant]
     Dosage: 15 ML, BID
     Route: 048
     Dates: start: 20120322

REACTIONS (3)
  - NEOPLASM MALIGNANT [None]
  - ANAL CANCER [None]
  - CEREBROVASCULAR ACCIDENT [None]
